FAERS Safety Report 19464537 (Version 3)
Quarter: 2021Q4

REPORT INFORMATION
  Report Type: Spontaneous
  Country: US (occurrence: US)
  Receive Date: 20210626
  Receipt Date: 20211225
  Transmission Date: 20220303
  Serious: No
  Sender: FDA-Public Use
  Company Number: US-SA-SAC20210624001359

PATIENT
  Age: 65 Year
  Sex: Male

DRUGS (13)
  1. DUPIXENT [Suspect]
     Active Substance: DUPILUMAB
     Indication: Dermatitis atopic
     Dosage: 300 MG, QOW
     Route: 058
     Dates: start: 202104
  2. HAND SANITIZER NOS [Concomitant]
     Active Substance: ALCOHOL\AVOBENZONE\HOMOSALATE\OCTISALATE\OCTOCRYLENE\OXYBENZONE OR ALCOHOL\HOMOSALATE\OCTINOXATE\OCT
  3. DICLOFENAC SODIUM [Concomitant]
     Active Substance: DICLOFENAC SODIUM
  4. FENOFIBRATE [Concomitant]
     Active Substance: FENOFIBRATE
  5. DIAZEPAM [Concomitant]
     Active Substance: DIAZEPAM
  6. ATORVASTATIN CALCIUM [Concomitant]
     Active Substance: ATORVASTATIN CALCIUM
  7. GLIPIZIDE [Concomitant]
     Active Substance: GLIPIZIDE
  8. DICYCLOMINE [Concomitant]
     Active Substance: DICYCLOMINE HYDROCHLORIDE
  9. AMLODIPINE BESYLATE [Concomitant]
     Active Substance: AMLODIPINE BESYLATE
  10. OMEPRAZOLE [Concomitant]
     Active Substance: OMEPRAZOLE
  11. FAMOTIDINE [Concomitant]
     Active Substance: FAMOTIDINE
  12. RAMIPRIL [Concomitant]
     Active Substance: RAMIPRIL
  13. PFIZER-BIONTECH COVID-19 VACCINE [Concomitant]
     Active Substance: TOZINAMERAN
     Indication: Immunisation

REACTIONS (4)
  - Skin exfoliation [Unknown]
  - Skin fissures [Unknown]
  - Injection site rash [Unknown]
  - Adverse reaction [Unknown]

NARRATIVE: CASE EVENT DATE: 20210101
